FAERS Safety Report 5009062-4 (Version None)
Quarter: 2006Q2

REPORT INFORMATION
  Report Type: 
  Country: None (occurrence: None)
  Receive Date: 20060404
  Receipt Date: 20051110
  Transmission Date: 20061013
  Serious: No
  Sender: FDA-Public Use
  Company Number: US200511000897

PATIENT
  Sex: Female

DRUGS (3)
  1. CYMBALTA [Suspect]
     Dosage: 30 MG
     Dates: start: 20051103, end: 20051103
  2. NEUROTON (CITICOLINE SODIUM) [Concomitant]
  3. ANTIHYPERTENSIVE AGENT (ANTIHYPERTENSIVE AGENT) [Concomitant]

REACTIONS (3)
  - FEELING ABNORMAL [None]
  - SLUGGISHNESS [None]
  - THINKING ABNORMAL [None]
